FAERS Safety Report 21148391 (Version 2)
Quarter: 2022Q3

REPORT INFORMATION
  Report Type: Spontaneous
  Country: US (occurrence: US)
  Receive Date: 20220729
  Receipt Date: 20220816
  Transmission Date: 20221027
  Serious: No
  Sender: FDA-Public Use
  Company Number: US-BRISTOL-MYERS SQUIBB COMPANY-2022-073114

PATIENT
  Age: 39 Year
  Sex: Male

DRUGS (1)
  1. REVLIMID [Suspect]
     Active Substance: LENALIDOMIDE
     Indication: Chronic cutaneous lupus erythematosus
     Dosage: FREQUENCY - DAILY
     Route: 048
     Dates: start: 202207

REACTIONS (2)
  - Intentional product use issue [Unknown]
  - Product dose omission issue [Unknown]
